FAERS Safety Report 19038088 (Version 22)
Quarter: 2025Q1

REPORT INFORMATION
  Report Type: Spontaneous
  Country: US (occurrence: US)
  Receive Date: 20210322
  Receipt Date: 20250311
  Transmission Date: 20250409
  Serious: Yes (Other)
  Sender: PFIZER
  Company Number: US-PFIZER INC-2021224349

PATIENT
  Age: 62 Year
  Sex: Female
  Weight: 72.57 kg

DRUGS (8)
  1. XELJANZ XR [Suspect]
     Active Substance: TOFACITINIB CITRATE
     Indication: Rheumatoid arthritis
     Dosage: 11 MG, 1X/DAY
     Route: 048
     Dates: start: 2017
  2. XELJANZ XR [Suspect]
     Active Substance: TOFACITINIB CITRATE
     Dosage: 11 MG, 1X/DAY
     Route: 048
     Dates: start: 20230529
  3. XELJANZ XR [Suspect]
     Active Substance: TOFACITINIB CITRATE
     Dosage: 11 MG, ALTERNATE DAY
     Route: 048
  4. XELJANZ XR [Suspect]
     Active Substance: TOFACITINIB CITRATE
  5. CELEBREX [Concomitant]
     Active Substance: CELECOXIB
     Indication: Inflammation
  6. LEUCOVORIN CALCIUM [Concomitant]
     Active Substance: LEUCOVORIN CALCIUM
     Indication: Bone disorder
  7. TYLENOL [Concomitant]
     Active Substance: ACETAMINOPHEN
     Indication: Gastric ulcer
  8. FOLIC ACID [Concomitant]
     Active Substance: FOLIC ACID
     Indication: Bone disorder
     Dosage: UNK, DAILY

REACTIONS (36)
  - Fall [Unknown]
  - Hand fracture [Unknown]
  - Lower limb fracture [Unknown]
  - Asthenia [Not Recovered/Not Resolved]
  - Drug dependence [Not Recovered/Not Resolved]
  - Intentional product misuse [Unknown]
  - Product dose omission issue [Unknown]
  - Illness [Unknown]
  - Therapeutic product effect incomplete [Unknown]
  - Gait disturbance [Not Recovered/Not Resolved]
  - Joint swelling [Unknown]
  - Fatigue [Not Recovered/Not Resolved]
  - Condition aggravated [Unknown]
  - Ear infection [Unknown]
  - Vomiting [Unknown]
  - Food poisoning [Unknown]
  - Back pain [Not Recovered/Not Resolved]
  - Dyspepsia [Unknown]
  - Arthralgia [Unknown]
  - Pain [Unknown]
  - Gastroenteritis viral [Unknown]
  - Limb discomfort [Unknown]
  - Pain in extremity [Unknown]
  - Dizziness [Unknown]
  - Head discomfort [Unknown]
  - Swelling face [Unknown]
  - Cough [Unknown]
  - Hypoaesthesia [Unknown]
  - Muscle spasms [Unknown]
  - Vision blurred [Unknown]
  - Vertigo [Unknown]
  - Nervousness [Unknown]
  - Asthenia [Unknown]
  - Hypertension [Unknown]
  - Nausea [Unknown]
  - Intervertebral disc protrusion [Unknown]

NARRATIVE: CASE EVENT DATE: 20220101
